FAERS Safety Report 20603514 (Version 2)
Quarter: 2022Q2

REPORT INFORMATION
  Report Type: Spontaneous
  Country: US (occurrence: US)
  Receive Date: 20220316
  Receipt Date: 20220428
  Transmission Date: 20220720
  Serious: Yes (Other)
  Sender: FDA-Public Use
  Company Number: US-PFIZER INC-202200364093

PATIENT
  Age: 73 Year
  Sex: Female
  Weight: 67.12 kg

DRUGS (4)
  1. PREMARIN [Suspect]
     Active Substance: ESTROGENS, CONJUGATED
     Indication: Atrophy
     Dosage: 3 TIMES A WEEK FOR 2 WEEKS
     Route: 067
     Dates: start: 20220118
  2. PREMARIN [Suspect]
     Active Substance: ESTROGENS, CONJUGATED
     Indication: Vaginal disorder
     Dosage: 0.5 MG, 2X/WEEK
     Route: 067
  3. IBUPROFEN [Concomitant]
     Active Substance: IBUPROFEN
     Indication: Arthritis
     Dosage: 1 A DAY AS NEEDED
  4. BENADRYL [Concomitant]
     Active Substance: DIPHENHYDRAMINE HYDROCHLORIDE
     Indication: Sleep disorder
     Dosage: 25 MG, 1X/DAY (1 TABLET AT NIGHT)

REACTIONS (11)
  - Postmenopausal haemorrhage [Recovered/Resolved]
  - Poor quality product administered [Unknown]
  - Product quality issue [Unknown]
  - Wrong technique in product usage process [Unknown]
  - Off label use [Unknown]
  - Peripheral swelling [Not Recovered/Not Resolved]
  - Feeling hot [Not Recovered/Not Resolved]
  - Vulvovaginal dryness [Not Recovered/Not Resolved]
  - Weight increased [Unknown]
  - Insomnia [Unknown]
  - Lichen sclerosus [Unknown]

NARRATIVE: CASE EVENT DATE: 20220130
